FAERS Safety Report 16422447 (Version 3)
Quarter: 2020Q1

REPORT INFORMATION
  Report Type: Spontaneous
  Country: GB (occurrence: GB)
  Receive Date: 20190612
  Receipt Date: 20200313
  Transmission Date: 20200409
  Serious: Yes (Other)
  Sender: FDA-Public Use
  Company Number: GB-PFIZER INC-2019248709

PATIENT
  Age: 29 Year
  Sex: Female
  Weight: 84.3 kg

DRUGS (9)
  1. METFORMIN [Concomitant]
     Active Substance: METFORMIN HYDROCHLORIDE
     Dosage: 750 MG, 1X/DAY
     Dates: start: 20170622
  2. GABAPENTIN. [Concomitant]
     Active Substance: GABAPENTIN
     Dosage: 900 MG, 1X/DAY
     Dates: start: 20170622
  3. CABERGOLINE. [Suspect]
     Active Substance: CABERGOLINE
     Dosage: 500 UG, UNK
  4. IBUPROFEN. [Concomitant]
     Active Substance: IBUPROFEN
     Dosage: 1200 MG, 1X/DAY
     Dates: start: 20170612
  5. AMITRIPTYLINE [Concomitant]
     Active Substance: AMITRIPTYLINE
     Dosage: 10 MG, ONE OR TWO TABLET AT NIGHT
     Dates: start: 20170622
  6. COCODAMOL [Concomitant]
     Active Substance: ACETAMINOPHEN\CODEINE PHOSPHATE
     Dosage: 1-2 CAPSULES UP TO FOUR TIMES DAILY, 30MG/500MG
     Dates: start: 20170531
  7. RANITIDINE. [Concomitant]
     Active Substance: RANITIDINE
     Dosage: 150 MG, AS NEEDED (1 DAILY)
     Dates: start: 20170531
  8. LEVOTHYROXINE. [Concomitant]
     Active Substance: LEVOTHYROXINE
     Dosage: 25 UG, 1X/DAY
     Dates: start: 20170612
  9. TRANEXAMIC ACID. [Concomitant]
     Active Substance: TRANEXAMIC ACID
     Dosage: 1000 MG, UP TO THREE TIMES A DAY FOR UP TO 4 DAYS DURING PERIOD
     Dates: start: 20170622

REACTIONS (4)
  - Pyrexia [Unknown]
  - Hyperhidrosis [Not Recovered/Not Resolved]
  - Pituitary tumour benign [Unknown]
  - Chills [Unknown]

NARRATIVE: CASE EVENT DATE: 20170808
